FAERS Safety Report 21310377 (Version 1)
Quarter: 2022Q3

REPORT INFORMATION
  Report Type: Spontaneous
  Country: US (occurrence: US)
  Receive Date: 20220909
  Receipt Date: 20220909
  Transmission Date: 20221026
  Serious: No
  Sender: FDA-Public Use
  Company Number: US-ELI_LILLY_AND_COMPANY-US202208013653

PATIENT
  Sex: Male

DRUGS (2)
  1. TRULICITY [Suspect]
     Active Substance: DULAGLUTIDE
     Indication: Type 2 diabetes mellitus
     Dosage: 3 MG, UNKNOWN
     Route: 058
     Dates: start: 2020
  2. METFORMIN [Concomitant]
     Active Substance: METFORMIN HYDROCHLORIDE
     Indication: Product used for unknown indication

REACTIONS (7)
  - Visual impairment [Unknown]
  - Hypertension [Unknown]
  - Food craving [Unknown]
  - Blood glucose increased [Unknown]
  - Glycosylated haemoglobin increased [Recovered/Resolved]
  - Intervertebral disc protrusion [Unknown]
  - Photophobia [Unknown]

NARRATIVE: CASE EVENT DATE: 20210101
